FAERS Safety Report 10510908 (Version 12)
Quarter: 2017Q4

REPORT INFORMATION
  Report Type: Report from Study
  Country: AU (occurrence: AU)
  Receive Date: 20141010
  Receipt Date: 20171220
  Transmission Date: 20180320
  Serious: Yes (Hospitalization, Disabling, Other)
  Sender: FDA-Public Use
  Company Number: PHHY2014AU085041

PATIENT
  Age: 56 Year
  Sex: Female

DRUGS (3)
  1. SANDOSTATIN [Suspect]
     Active Substance: OCTREOTIDE ACETATE
     Indication: PRODUCT USED FOR UNKNOWN INDICATION
     Route: 058
  2. SANDOSTATIN LAR DEPOT [Suspect]
     Active Substance: OCTREOTIDE ACETATE
     Dosage: 50 MG, UNK
     Route: 030
  3. SANDOSTATIN LAR DEPOT [Suspect]
     Active Substance: OCTREOTIDE ACETATE
     Indication: CARCINOID SYNDROME
     Dosage: 60 MG, UNK
     Route: 030

REACTIONS (21)
  - Supraventricular tachycardia [Not Recovered/Not Resolved]
  - Musculoskeletal stiffness [Unknown]
  - Heart rate irregular [Recovered/Resolved]
  - Rash [Not Recovered/Not Resolved]
  - Joint swelling [Unknown]
  - Tricuspid valve stenosis [Not Recovered/Not Resolved]
  - Gingivitis [Unknown]
  - Palpitations [Recovered/Resolved]
  - Tachycardia [Unknown]
  - Flushing [Not Recovered/Not Resolved]
  - Tricuspid valve incompetence [Not Recovered/Not Resolved]
  - Tricuspid valve calcification [Not Recovered/Not Resolved]
  - Weight decreased [Not Recovered/Not Resolved]
  - Fluid retention [Not Recovered/Not Resolved]
  - Dyspnoea [Not Recovered/Not Resolved]
  - Needle issue [Not Recovered/Not Resolved]
  - Tooth fracture [Not Recovered/Not Resolved]
  - International normalised ratio abnormal [Recovering/Resolving]
  - Swelling face [Unknown]
  - Post procedural haemorrhage [Recovered/Resolved]
  - Diarrhoea [Not Recovered/Not Resolved]

NARRATIVE: CASE EVENT DATE: 20140710
